FAERS Safety Report 7432943-9 (Version None)
Quarter: 2011Q2

REPORT INFORMATION
  Report Type: 
  Country: None (occurrence: None)
  Receive Date: 20110422
  Receipt Date: 20110419
  Transmission Date: 20111010
  Serious: No
  Sender: FDA-Public Use
  Company Number: US-PFIZER INC-2011055754

PATIENT
  Sex: Female

DRUGS (1)
  1. CORDARONE [Suspect]
     Dosage: 200 MG, UNK

REACTIONS (1)
  - ABDOMINAL DISCOMFORT [None]
